FAERS Safety Report 6617895-3 (Version None)
Quarter: 2010Q1

REPORT INFORMATION
  Report Type: 
  Country: None (occurrence: None)
  Receive Date: 20100302
  Receipt Date: 20091130
  Transmission Date: 20100710
  Serious: Yes (Hospitalization)
  Sender: FDA-Public Use
  Company Number: 8054046

PATIENT
  Sex: Female

DRUGS (3)
  1. PREDSOL /00016202/ (PREDSOL) [Suspect]
     Indication: RHEUMATOID ARTHRITIS
     Dosage: (5 MG, 5 MG TRANSPLACENTAL)
     Route: 064
     Dates: start: 20040404, end: 20060123
  2. ARAVA [Suspect]
     Indication: RHEUMATOID ARTHRITIS
     Dosage: (20 MG, 20 TRANSPLACENTAL)
     Route: 064
     Dates: start: 20040415, end: 20050701
  3. ACETAMINOPHEN [Suspect]
     Indication: PAIN
     Dosage: (1 G QD TRANSPLACENTAL)
     Route: 064

REACTIONS (4)
  - CARDIAC MURMUR [None]
  - CONGENITAL HEART VALVE DISORDER [None]
  - MATERNAL DRUGS AFFECTING FOETUS [None]
  - PREMATURE BABY [None]
